FAERS Safety Report 13482529 (Version 4)
Quarter: 2018Q1

REPORT INFORMATION
  Report Type: Report from Study
  Country: US (occurrence: US)
  Receive Date: 20170424
  Receipt Date: 20180123
  Transmission Date: 20180508
  Serious: No
  Sender: FDA-Public Use
  Company Number: US-AMGEN-USASP2017053884

PATIENT
  Age: 66 Year
  Sex: Female

DRUGS (2)
  1. REPATHA [Suspect]
     Active Substance: EVOLOCUMAB
     Indication: BLOOD CHOLESTEROL INCREASED
     Dosage: 140 MG, Q2WK
     Route: 065
     Dates: start: 201606, end: 201709
  2. REPATHA [Suspect]
     Active Substance: EVOLOCUMAB
     Indication: HYPERCHOLESTEROLAEMIA

REACTIONS (11)
  - Lacrimation increased [Not Recovered/Not Resolved]
  - Hypertension [Not Recovered/Not Resolved]
  - Pain [Unknown]
  - Pain in extremity [Not Recovered/Not Resolved]
  - Mobility decreased [Not Recovered/Not Resolved]
  - Limb discomfort [Not Recovered/Not Resolved]
  - Musculoskeletal discomfort [Not Recovered/Not Resolved]
  - Back disorder [Unknown]
  - Back pain [Not Recovered/Not Resolved]
  - Myalgia [Not Recovered/Not Resolved]
  - Arthralgia [Not Recovered/Not Resolved]
